FAERS Safety Report 8090506-9 (Version None)
Quarter: 2012Q1

REPORT INFORMATION
  Report Type: 
  Country: None (occurrence: None)
  Receive Date: 20120129
  Receipt Date: 20111102
  Transmission Date: 20120608
  Serious: No
  Sender: FDA-Public Use
  Company Number: US-ABBOTT-11P-163-0871077-00

PATIENT
  Sex: Female

DRUGS (6)
  1. METHOTREXATE [Suspect]
     Indication: PRODUCT USED FOR UNKNOWN INDICATION
     Dates: end: 20101201
  2. ENBREL [Suspect]
     Indication: PRODUCT USED FOR UNKNOWN INDICATION
     Dates: start: 20110801, end: 20110901
  3. HUMIRA [Suspect]
     Indication: RHEUMATOID ARTHRITIS
     Route: 058
     Dates: start: 20100901, end: 20110801
  4. WELLBUTRIN [Concomitant]
     Indication: PRODUCT USED FOR UNKNOWN INDICATION
  5. PLAQUENIL [Concomitant]
     Indication: PRODUCT USED FOR UNKNOWN INDICATION
  6. ELLAVIL [Concomitant]
     Indication: PRODUCT USED FOR UNKNOWN INDICATION

REACTIONS (7)
  - VARICES OESOPHAGEAL [None]
  - DRUG EFFECT DECREASED [None]
  - BLOOD PRESSURE INCREASED [None]
  - PALPITATIONS [None]
  - HEPATIC STEATOSIS [None]
  - HEPATOMEGALY [None]
  - HEADACHE [None]
